FAERS Safety Report 9738916 (Version 1)
Quarter: 2013Q4

REPORT INFORMATION
  Report Type: Spontaneous
  Country: GB (occurrence: GB)
  Receive Date: 20131209
  Receipt Date: 20131209
  Transmission Date: 20140711
  Serious: Yes (Other)
  Sender: FDA-Public Use
  Company Number: GB-RANBAXY-2013R1-75691

PATIENT
  Age: 17 Year
  Sex: Female
  Weight: 65.77 kg

DRUGS (2)
  1. CLARITHROMYCIN [Suspect]
     Indication: TONSILLITIS BACTERIAL
     Dosage: 250 MG, BID
     Route: 048
     Dates: start: 20131106, end: 20131113
  2. NAPROXEN [Concomitant]
     Indication: MASTITIS
     Dosage: UNK
     Route: 065

REACTIONS (6)
  - Abdominal pain upper [Recovering/Resolving]
  - Dysgeusia [Recovered/Resolved]
  - Asthenopia [Recovered/Resolved]
  - Abdominal pain upper [Unknown]
  - Sensation of heaviness [Unknown]
  - Fatigue [Unknown]
